FAERS Safety Report 17175937 (Version 1)
Quarter: 2019Q4

REPORT INFORMATION
  Report Type: Spontaneous
  Country: US (occurrence: US)
  Receive Date: 20191127
  Receipt Date: 20191127
  Transmission Date: 20200122
  Serious: Yes (Death, Hospitalization)
  Sender: FDA-Public Use
  Company Number: None

PATIENT
  Age: 59 Year
  Sex: Female

DRUGS (12)
  1. KLOR-CON [Concomitant]
     Active Substance: POTASSIUM CHLORIDE
  2. CALCITRIOL. [Concomitant]
     Active Substance: CALCITRIOL
  3. TADALAFIL. [Concomitant]
     Active Substance: TADALAFIL
  4. LEVOTHYROXINE. [Concomitant]
     Active Substance: LEVOTHYROXINE
  5. PANTOPRAZOLE, CALCIUM CARBONATE-VIT D3 [Concomitant]
  6. OPSUMIT [Suspect]
     Active Substance: MACITENTAN
     Indication: PULMONARY ARTERIAL HYPERTENSION
     Route: 048
     Dates: start: 201902, end: 201911
  7. TORSEMIDE. [Concomitant]
     Active Substance: TORSEMIDE
  8. EPOPROSTENOL. [Concomitant]
     Active Substance: EPOPROSTENOL
  9. ELIQUIS [Concomitant]
     Active Substance: APIXABAN
  10. AMIODARONE [Concomitant]
     Active Substance: AMIODARONE
  11. FLONASE [Concomitant]
     Active Substance: FLUTICASONE PROPIONATE
  12. DIGOXIN. [Concomitant]
     Active Substance: DIGOXIN

REACTIONS (3)
  - Sepsis [None]
  - Feeling abnormal [None]
  - Hypertension [None]

NARRATIVE: CASE EVENT DATE: 20191103
